FAERS Safety Report 10079897 (Version 1)
Quarter: 2014Q2

REPORT INFORMATION
  Report Type: Spontaneous
  Country: US (occurrence: US)
  Receive Date: 20140415
  Receipt Date: 20140415
  Transmission Date: 20141212
  Serious: Yes (Disabling, Other)
  Sender: FDA-Public Use
  Company Number: US-ELI_LILLY_AND_COMPANY-US201404001680

PATIENT
  Sex: Female

DRUGS (3)
  1. HUMALOG LISPRO [Suspect]
     Indication: TYPE 2 DIABETES MELLITUS
     Dosage: UNK UNK, PRN
     Dates: start: 2013
  2. PREDNISONE [Concomitant]
     Dosage: 5 MG, UNK
     Dates: start: 2013
  3. CELLCEPT [Concomitant]
     Dosage: UNK
     Dates: start: 2013

REACTIONS (2)
  - Macular degeneration [Not Recovered/Not Resolved]
  - Fear of injection [Unknown]
